FAERS Safety Report 7236608-8 (Version None)
Quarter: 2011Q1

REPORT INFORMATION
  Report Type: 
  Country: None (occurrence: None)
  Receive Date: 20110113
  Receipt Date: 20101228
  Transmission Date: 20110831
  Serious: Yes (Other)
  Sender: FDA-Public Use
  Company Number: GER/NET/11/0017059

PATIENT
  Age: 81 Year
  Sex: Male

DRUGS (6)
  1. CITALOPRAM HYDROBROMIDE [Suspect]
     Indication: ANXIETY
     Dates: start: 20070401
  2. METOPROLOL (METOPROLOL) [Suspect]
     Indication: ANGINA PECTORIS
     Dates: start: 20041001, end: 20080101
  3. VALPORIC ACID (VALPORIC ACID) [Concomitant]
  4. OXAZEPAM [Concomitant]
  5. PANTOPRAZOLE [Concomitant]
  6. ASPIRIN [Concomitant]

REACTIONS (16)
  - NIGHTMARE [None]
  - ABNORMAL DREAMS [None]
  - CONVULSION [None]
  - LOSS OF CONSCIOUSNESS [None]
  - CEREBROVASCULAR DISORDER [None]
  - TARDIVE DYSKINESIA [None]
  - DEPRESSION [None]
  - ANXIETY [None]
  - GASTROINTESTINAL DISORDER [None]
  - SLEEP DISORDER [None]
  - DRUG INEFFECTIVE [None]
  - DEPRESSED MOOD [None]
  - CHRONIC LYMPHOCYTIC LEUKAEMIA [None]
  - URINARY INCONTINENCE [None]
  - DYSPNOEA [None]
  - MUSCLE SPASMS [None]
